FAERS Safety Report 20324617 (Version 1)
Quarter: 2022Q1

REPORT INFORMATION
  Report Type: Spontaneous
  Country: US (occurrence: US)
  Receive Date: 20220111
  Receipt Date: 20220111
  Transmission Date: 20220423
  Serious: No
  Sender: FDA-Public Use
  Company Number: US-FOUNDATIONCONSUMERHC-2021-US-025044

PATIENT
  Age: 20 Year
  Sex: Female
  Weight: 49.9 kg

DRUGS (2)
  1. PLAN B ONE-STEP [Suspect]
     Active Substance: LEVONORGESTREL
     Indication: Post coital contraception
     Dosage: 1.5MG
     Route: 048
     Dates: start: 20211114, end: 20211114
  2. UNSPECIFIED INGREDIENT [Concomitant]
     Active Substance: UNSPECIFIED INGREDIENT
     Dosage: FORGOT TO TAKE AROUND 10-NOV-2021, RESTARTED ON APPROX 12-NOV-2021

REACTIONS (1)
  - Menstrual disorder [Not Recovered/Not Resolved]

NARRATIVE: CASE EVENT DATE: 20211114
